FAERS Safety Report 23445124 (Version 1)
Quarter: 2024Q1

REPORT INFORMATION
  Report Type: Spontaneous
  Country: US (occurrence: US)
  Receive Date: 20240125
  Receipt Date: 20240125
  Transmission Date: 20240410
  Serious: No
  Sender: FDA-Public Use
  Company Number: US-OYSTER POINT PHARMA, INC-US-OYS-23-001565

PATIENT
  Age: 26 Year
  Sex: Female

DRUGS (4)
  1. TYRVAYA [Suspect]
     Active Substance: VARENICLINE TARTRATE
     Indication: Product used for unknown indication
     Dosage: UNK
     Route: 045
     Dates: start: 202307, end: 202311
  2. REFRESH TEARS [Concomitant]
     Active Substance: CARBOXYMETHYLCELLULOSE SODIUM
     Indication: Product used for unknown indication
     Dosage: UNK
     Route: 065
  3. Artificial tears [Concomitant]
     Indication: Product used for unknown indication
     Dosage: UNK
     Route: 065
  4. ALLERGY CARE [Concomitant]
     Indication: Hypersensitivity
     Dosage: UNK
     Route: 048

REACTIONS (3)
  - Rhinorrhoea [Unknown]
  - Epistaxis [Recovered/Resolved]
  - Nasal discomfort [Not Recovered/Not Resolved]

NARRATIVE: CASE EVENT DATE: 20230101
